FAERS Safety Report 23796979 (Version 1)
Quarter: 2024Q2

REPORT INFORMATION
  Report Type: Spontaneous
  Country: ZA (occurrence: None)
  Receive Date: 20240430
  Receipt Date: 20240430
  Transmission Date: 20240716
  Serious: Yes (Hospitalization)
  Sender: FDA-Public Use
  Company Number: 2024A096548

PATIENT
  Age: 53 Year
  Sex: Male

DRUGS (9)
  1. DAPAGLIFLOZIN PROPANEDIOL [Suspect]
     Active Substance: DAPAGLIFLOZIN PROPANEDIOL
     Route: 048
  2. LIPOGEN [Concomitant]
  3. GLICLAZIDE [Concomitant]
     Active Substance: GLICLAZIDE
  4. PANTOPRAZOLE SODIUM [Concomitant]
     Active Substance: PANTOPRAZOLE SODIUM
  5. ASPIRIN [Concomitant]
     Active Substance: ASPIRIN
  6. CIFRAN [Concomitant]
  7. EZETIMIBE [Concomitant]
     Active Substance: EZETIMIBE
  8. AMLODIPINE BESYLATE [Concomitant]
     Active Substance: AMLODIPINE BESYLATE
  9. MIBITEZ [Concomitant]

REACTIONS (4)
  - Diabetes mellitus [Unknown]
  - Vomiting [Unknown]
  - Diarrhoea [Unknown]
  - Product administration error [Unknown]
